FAERS Safety Report 4572430-9 (Version None)
Quarter: 2005Q1

REPORT INFORMATION
  Report Type: 
  Country: None (occurrence: None)
  Receive Date: 20050207
  Receipt Date: 20050127
  Transmission Date: 20050727
  Serious: Yes (Other)
  Sender: FDA-Public Use
  Company Number: DK-GLAXOSMITHKLINE-B0369735A

PATIENT
  Age: 69 Year

DRUGS (4)
  1. ZYBAN [Suspect]
     Indication: SMOKING CESSATION THERAPY
     Dosage: 150MG UNKNOWN
     Route: 065
     Dates: start: 20041210, end: 20050103
  2. CENTYL + KCL [Concomitant]
     Indication: HYPERTENSION
     Route: 065
     Dates: start: 20011025
  3. MICARDIS [Concomitant]
     Indication: HYPERTENSION
     Dosage: 80MG UNKNOWN
     Route: 065
     Dates: start: 20020912
  4. METOPROLOL SUCCINATE [Concomitant]
     Indication: HYPERTENSION
     Dosage: 100MG UNKNOWN
     Route: 065
     Dates: start: 20041202

REACTIONS (2)
  - MOUTH ULCERATION [None]
  - STEVENS-JOHNSON SYNDROME [None]
